FAERS Safety Report 13644422 (Version 1)
Quarter: 2017Q2

REPORT INFORMATION
  Report Type: Spontaneous
  Country: US (occurrence: US)
  Receive Date: 20170612
  Receipt Date: 20170612
  Transmission Date: 20170830
  Serious: No
  Sender: FDA-Public Use
  Company Number: US-ROCHE-1303149

PATIENT
  Sex: Female

DRUGS (7)
  1. XELODA [Suspect]
     Active Substance: CAPECITABINE
     Indication: BREAST CANCER
     Dosage: 14 DAYS ON AND 7 DAYS OFF
     Route: 048
     Dates: start: 20131020
  2. SYNTHROID [Concomitant]
     Active Substance: LEVOTHYROXINE SODIUM
  3. XANAX [Concomitant]
     Active Substance: ALPRAZOLAM
  4. AMBIEN [Concomitant]
     Active Substance: ZOLPIDEM TARTRATE
  5. REMERON [Concomitant]
     Active Substance: MIRTAZAPINE
  6. COZAAR [Concomitant]
     Active Substance: LOSARTAN POTASSIUM
  7. CADUET [Concomitant]
     Active Substance: AMLODIPINE BESYLATE\ATORVASTATIN CALCIUM

REACTIONS (11)
  - Fatigue [Unknown]
  - Pain in extremity [Unknown]
  - Pruritus [Unknown]
  - Ageusia [Unknown]
  - Dysgeusia [Unknown]
  - Nausea [Unknown]
  - Skin discolouration [Unknown]
  - Diarrhoea [Unknown]
  - Muscular weakness [Unknown]
  - Decreased appetite [Unknown]
  - Neuropathy peripheral [Unknown]
